FAERS Safety Report 17507545 (Version 6)
Quarter: 2021Q3

REPORT INFORMATION
  Report Type: Spontaneous
  Country: GB (occurrence: GB)
  Receive Date: 20200306
  Receipt Date: 20210805
  Transmission Date: 20211014
  Serious: Yes (Death, Other)
  Sender: FDA-Public Use
  Company Number: GB-AMGEN-GBRSP2020036606

PATIENT
  Age: 53 Year
  Sex: Female

DRUGS (10)
  1. TRASTUZUMAB. [Suspect]
     Active Substance: TRASTUZUMAB
     Indication: BREAST CANCER
     Dosage: 1071 MILLIGRAM, QD, LOADING DOSE 1 CYCLE PER REGIMEN
     Route: 042
     Dates: start: 20151203, end: 20151203
  2. TRASTUZUMAB. [Suspect]
     Active Substance: TRASTUZUMAB
     Dosage: 819 MILLIGRAM, Q3WK, MAINTENANCE DOSE
     Route: 042
     Dates: start: 20151223, end: 20160113
  3. DOCETAXEL. [Suspect]
     Active Substance: DOCETAXEL
     Dosage: 90 MILLIGRAM, Q3WK
     Route: 042
     Dates: start: 20160203, end: 20160316
  4. TRASTUZUMAB EMTANSINE [Suspect]
     Active Substance: ADO-TRASTUZUMAB EMTANSINE
     Indication: BREAST CANCER
     Dosage: 450 MILLIGRAM, Q3WK
     Route: 042
     Dates: start: 20160817, end: 20161109
  5. DOCETAXEL. [Suspect]
     Active Substance: DOCETAXEL
     Dosage: UNK, Q3WK
     Route: 042
     Dates: start: 20151223, end: 20160113
  6. DOCETAXEL. [Suspect]
     Active Substance: DOCETAXEL
     Indication: BREAST CANCER
     Dosage: UNK
     Route: 042
     Dates: start: 20151204, end: 20151204
  7. XGEVA [Suspect]
     Active Substance: DENOSUMAB
     Indication: BREAST CANCER
     Dosage: 120 MILLIGRAM, Q3WK
     Route: 058
     Dates: start: 20151203
  8. TRASTUZUMAB. [Suspect]
     Active Substance: TRASTUZUMAB
     Dosage: 735 MILLIGRAM, Q3WK, MAINTENANCE DOSE
     Route: 042
     Dates: start: 20160203, end: 20160220
  9. PERTUZUMAB. [Suspect]
     Active Substance: PERTUZUMAB
     Indication: BREAST CANCER
     Dosage: 840 MILLIGRAM, Q3WK, LOADING DOSE, 1 CYCLE PER REGIMEN
     Route: 042
     Dates: start: 20151203, end: 20151203
  10. PERTUZUMAB. [Suspect]
     Active Substance: PERTUZUMAB
     Dosage: 420 MILLIGRAM, Q3WK, MAINTAINENCE DOSE
     Route: 042
     Dates: start: 20151223, end: 20160720

REACTIONS (16)
  - Fatigue [Recovering/Resolving]
  - Diabetes mellitus [Not Recovered/Not Resolved]
  - Vomiting [Recovered/Resolved]
  - Dyspnoea [Unknown]
  - Nail discolouration [Unknown]
  - Spinal pain [Recovered/Resolved]
  - Blood cholesterol increased [Unknown]
  - Migraine [Recovered/Resolved]
  - Cough [Not Recovered/Not Resolved]
  - Diarrhoea [Recovered/Resolved]
  - Onychomycosis [Unknown]
  - Depressed mood [Recovered/Resolved]
  - Decreased appetite [Unknown]
  - Off label use [Unknown]
  - Vomiting [Recovered/Resolved]
  - Fatigue [Recovering/Resolving]

NARRATIVE: CASE EVENT DATE: 20151203
